FAERS Safety Report 5202321-1 (Version None)
Quarter: 2007Q1

REPORT INFORMATION
  Report Type: 
  Country: None (occurrence: None)
  Receive Date: 20070109
  Receipt Date: 20061229
  Transmission Date: 20070707
  Serious: Yes (Other)
  Sender: FDA-Public Use
  Company Number: GB-ELI_LILLY_AND_COMPANY-GB200611004637

PATIENT
  Age: 61 Year
  Sex: Female
  Weight: 80 kg

DRUGS (7)
  1. XIGRIS [Suspect]
     Indication: SEPSIS
     Dosage: 2.304 MG/KG, UNK
     Route: 042
     Dates: start: 20061126, end: 20061127
  2. XIGRIS [Suspect]
     Dosage: 2.304 MG/KG, UNK
     Route: 042
     Dates: start: 20061126, end: 20061127
  3. CIPROFLOXACIN [Concomitant]
     Indication: SEPSIS
     Dates: start: 20061125
  4. PENICILLIN G [Concomitant]
     Indication: SEPSIS
     Dates: start: 20061125
  5. NORADRENALINE [Concomitant]
     Indication: SEPSIS
     Dates: start: 20061126
  6. FENTANYL TRANSDERMAL SYSTEM [Concomitant]
     Indication: ANALGESIC EFFECT
     Dates: start: 20061126
  7. MIDAZOLAM HYDROCHLORIDE [Concomitant]
     Indication: SEDATION
     Dates: start: 20061126

REACTIONS (4)
  - ACCIDENTAL OVERDOSE [None]
  - ACTIVATED PARTIAL THROMBOPLASTIN TIME PROLONGED [None]
  - INTERNATIONAL NORMALISED RATIO INCREASED [None]
  - MEDICATION ERROR [None]
